FAERS Safety Report 9896594 (Version 1)
Quarter: 2014Q1

REPORT INFORMATION
  Report Type: Spontaneous
  Country: US (occurrence: US)
  Receive Date: 20140213
  Receipt Date: 20140213
  Transmission Date: 20141002
  Serious: No
  Sender: FDA-Public Use
  Company Number: US-BRISTOL-MYERS SQUIBB COMPANY-19135938

PATIENT
  Age: 56 Year
  Sex: Female
  Weight: 84.35 kg

DRUGS (7)
  1. ABATACEPT SUBQ INJECTION 125MG/ML [Suspect]
     Indication: RHEUMATOID ARTHRITIS
     Dosage: 1DF:125MG/ML
     Route: 058
     Dates: start: 20130619
  2. ATENOLOL [Concomitant]
  3. LISINOPRIL [Concomitant]
  4. LYRICA [Concomitant]
  5. CALCIUM [Concomitant]
  6. SYNTHROID [Concomitant]
  7. TRAMADOL [Concomitant]

REACTIONS (2)
  - Rash [Unknown]
  - Sinusitis [Unknown]
